FAERS Safety Report 9735455 (Version 1)
Quarter: 2013Q4

REPORT INFORMATION
  Report Type: Spontaneous
  Country: US (occurrence: US)
  Receive Date: 20131206
  Receipt Date: 20131206
  Transmission Date: 20140711
  Serious: No
  Sender: FDA-Public Use
  Company Number: US-GILEAD-2009-0023215

PATIENT
  Sex: Female

DRUGS (19)
  1. LETAIRIS [Suspect]
     Indication: PULMONARY ARTERIAL HYPERTENSION
     Route: 048
     Dates: start: 20090522
  2. ASPIRIN [Concomitant]
  3. LASIX [Concomitant]
  4. PRINIVIL [Concomitant]
  5. LANOXIN [Concomitant]
  6. SYNTHROID [Concomitant]
  7. ULTRAM [Concomitant]
  8. NEURONTIN [Concomitant]
  9. PERCOCET [Concomitant]
  10. CYMBALTA [Concomitant]
  11. XANAX [Concomitant]
  12. PRILOSEC [Concomitant]
  13. DETROL LA [Concomitant]
  14. IMODIUM [Concomitant]
  15. LUTEIN [Concomitant]
  16. ARTIFICIAL TEARS [Concomitant]
  17. CALCIUM CARBONATE [Concomitant]
  18. GLUCOSAMINE [Concomitant]
  19. VITAMIN D [Concomitant]

REACTIONS (1)
  - Hepatic enzyme abnormal [Unknown]
